FAERS Safety Report 17325710 (Version 1)
Quarter: 2020Q1

REPORT INFORMATION
  Report Type: Spontaneous
  Country: US (occurrence: US)
  Receive Date: 20200127
  Receipt Date: 20200127
  Transmission Date: 20200409
  Serious: No
  Sender: FDA-Public Use
  Company Number: US-009507513-2001USA008122

PATIENT
  Age: 37 Year
  Sex: Male

DRUGS (3)
  1. CIDOFOVIR. [Concomitant]
     Active Substance: CIDOFOVIR
     Indication: ADENOVIRAL ENCEPHALITIS
     Dosage: UNK
  2. ACYCLOVIR. [Concomitant]
     Active Substance: ACYCLOVIR
     Indication: MENINGOENCEPHALITIS VIRAL
     Dosage: UNK
  3. REBETOL [Suspect]
     Active Substance: RIBAVIRIN
     Indication: ADENOVIRAL ENCEPHALITIS
     Dosage: UNK

REACTIONS (2)
  - Contraindicated product administered [Unknown]
  - Off label use [Unknown]
